FAERS Safety Report 19370117 (Version 1)
Quarter: 2021Q2

REPORT INFORMATION
  Report Type: Spontaneous
  Country: KR (occurrence: KR)
  Receive Date: 20210603
  Receipt Date: 20210603
  Transmission Date: 20210717
  Serious: Yes (Death, Other)
  Sender: FDA-Public Use
  Company Number: KR-SEBELA IRELAND LIMITED-2021SEB00070

PATIENT
  Age: 52 Year
  Sex: Female

DRUGS (5)
  1. PREDNISOLONE. [Suspect]
     Active Substance: PREDNISOLONE
     Indication: AUTOIMMUNE HEPATITIS
     Dosage: 40 MG, 1X/DAY
     Route: 065
  2. AZATHIOPRINE. [Suspect]
     Active Substance: AZATHIOPRINE
     Indication: AUTOIMMUNE HEPATITIS
     Dosage: 50 MG
     Route: 065
  3. URSODEOXYCHOLIC ACID [Concomitant]
     Active Substance: URSODIOL
     Dosage: 15 MG/KG
     Route: 065
  4. PREDNISOLONE. [Suspect]
     Active Substance: PREDNISOLONE
     Dosage: REDUCED BY 10 MG EVERY WEEK
     Route: 065
  5. PREDNISOLONE. [Suspect]
     Active Substance: PREDNISOLONE
     Dosage: 5 MG. 1X/DAY
     Route: 065

REACTIONS (6)
  - Cardiac arrest [Fatal]
  - Pulseless electrical activity [Fatal]
  - Cardiomyopathy [Not Recovered/Not Resolved]
  - Septic shock [Fatal]
  - Sepsis [Fatal]
  - Necrotising gastritis [Fatal]
